FAERS Safety Report 4327906-6 (Version None)
Quarter: 2004Q1

REPORT INFORMATION
  Report Type: 
  Country: None (occurrence: None)
  Receive Date: 20040325
  Receipt Date: 20040317
  Transmission Date: 20041129
  Serious: Yes (Death, Other)
  Sender: FDA-Public Use
  Company Number: 200415909BWH

PATIENT

DRUGS (1)
  1. TRASYLOL [Suspect]
     Dosage: INTRAVENOUS
     Route: 042

REACTIONS (1)
  - UNEVALUABLE EVENT [None]
